FAERS Safety Report 17626670 (Version 1)
Quarter: 2020Q2

REPORT INFORMATION
  Report Type: Report from Study
  Country: HU (occurrence: HU)
  Receive Date: 20200405
  Receipt Date: 20200405
  Transmission Date: 20200713
  Serious: Yes (Other)
  Sender: FDA-Public Use
  Company Number: HU-TEVA-2019-HU-1111992

PATIENT
  Age: 38 Year
  Sex: Female

DRUGS (2)
  1. COPAXONE [Suspect]
     Active Substance: GLATIRAMER ACETATE
     Indication: MULTIPLE SCLEROSIS
     Route: 058
     Dates: start: 20190227, end: 20190902
  2. L-TYROXIN [Concomitant]
     Indication: THYROID DISORDER
     Dosage: 75 MICROGRAM DAILY;

REACTIONS (15)
  - Lipids increased [Unknown]
  - Cervix disorder [Unknown]
  - Flushing [Recovered/Resolved]
  - Inflammatory marker increased [Unknown]
  - Wound [Unknown]
  - Maternal exposure during pregnancy [Unknown]
  - Malaise [Recovered/Resolved]
  - Dyspnoea [Recovered/Resolved]
  - Caesarean section [Unknown]
  - Dizziness [Recovered/Resolved]
  - Cardiac discomfort [Recovered/Resolved]
  - Hyperhidrosis [Recovered/Resolved]
  - Injection site erythema [Recovered/Resolved]
  - Normal newborn [Unknown]
  - Erythema [Recovered/Resolved]

NARRATIVE: CASE EVENT DATE: 2019
